FAERS Safety Report 11022990 (Version 2)
Quarter: 2015Q2

REPORT INFORMATION
  Report Type: Spontaneous
  Country: US (occurrence: US)
  Receive Date: 20150413
  Receipt Date: 20150413
  Transmission Date: 20150821
  Serious: No
  Sender: FDA-Public Use
  Company Number: US-ASTELLAS-2014US012731

PATIENT
  Age: 25 Year
  Sex: Male

DRUGS (1)
  1. PROTOPIC [Suspect]
     Active Substance: TACROLIMUS
     Indication: PSORIASIS
     Dosage: UNK UNK, UNKNOWN FREQ.
     Route: 061
     Dates: end: 201409

REACTIONS (3)
  - Skin haemorrhage [Unknown]
  - Skin fissures [Unknown]
  - Condition aggravated [Unknown]

NARRATIVE: CASE EVENT DATE: 201409
